FAERS Safety Report 6501627-3 (Version None)
Quarter: 2009Q4

REPORT INFORMATION
  Report Type: 
  Country: None (occurrence: None)
  Receive Date: 20091216
  Receipt Date: 20091207
  Transmission Date: 20100525
  Serious: Yes (Other)
  Sender: FDA-Public Use
  Company Number: KR-ELI_LILLY_AND_COMPANY-KR200912001650

PATIENT
  Age: 53 Year
  Sex: Female
  Weight: 71 kg

DRUGS (5)
  1. BYETTA [Suspect]
     Indication: TYPE 2 DIABETES MELLITUS
     Dosage: 5 UG, 2/D
     Route: 058
     Dates: start: 20090801, end: 20090101
  2. BYETTA [Suspect]
     Dosage: 10 UG, 2/D
     Route: 058
     Dates: start: 20090901
  3. METFORMIN HCL [Concomitant]
     Indication: DIABETES MELLITUS
  4. LEVEMIR [Concomitant]
     Indication: DIABETES MELLITUS
     Dosage: 48 U, EACH MORNING
  5. LEVEMIR [Concomitant]
     Dosage: 20 U, EACH EVENING
     Dates: start: 20091016

REACTIONS (4)
  - GENERALISED OEDEMA [None]
  - OFF LABEL USE [None]
  - POLLAKIURIA [None]
  - URINE OUTPUT INCREASED [None]
